FAERS Safety Report 24690695 (Version 1)
Quarter: 2024Q4

REPORT INFORMATION
  Report Type: Spontaneous
  Country: DE (occurrence: DE)
  Receive Date: 20241203
  Receipt Date: 20241203
  Transmission Date: 20250115
  Serious: Yes (Other)
  Sender: NOVA LABORATORIES LIMITED
  Company Number: DE-Nova Laboratories Limited-2166340

PATIENT
  Sex: Male

DRUGS (1)
  1. XROMI [Suspect]
     Active Substance: HYDROXYUREA
     Indication: Polycythaemia vera

REACTIONS (3)
  - Myelofibrosis [Not Recovered/Not Resolved]
  - Off label use [Unknown]
  - Splenomegaly [Recovering/Resolving]
